FAERS Safety Report 24630600 (Version 2)
Quarter: 2024Q4

REPORT INFORMATION
  Report Type: Report from Study
  Country: RU (occurrence: RU)
  Receive Date: 20241118
  Receipt Date: 20241120
  Transmission Date: 20250114
  Serious: Yes (Other)
  Sender: ALEXION PHARMACEUTICALS
  Company Number: RU-AstraZeneca-CH-00735732A

PATIENT
  Age: 16 Year
  Weight: 56 kg

DRUGS (4)
  1. SELUMETINIB [Suspect]
     Active Substance: SELUMETINIB
     Indication: Neurofibromatosis
  2. SELUMETINIB [Suspect]
     Active Substance: SELUMETINIB
  3. SELUMETINIB [Suspect]
     Active Substance: SELUMETINIB
  4. SELUMETINIB [Suspect]
     Active Substance: SELUMETINIB

REACTIONS (2)
  - Oedema peripheral [Recovering/Resolving]
  - Cyanosis [Recovering/Resolving]
